FAERS Safety Report 8500799-9 (Version None)
Quarter: 2012Q2

REPORT INFORMATION
  Report Type: 
  Country: None (occurrence: None)
  Receive Date: 20120405
  Receipt Date: 20110215
  Transmission Date: 20120825
  Serious: Yes (Disabling)
  Sender: FDA-Public Use
  Company Number: PHHY2011US04254

PATIENT
  Age: 53 Year
  Sex: Female

DRUGS (5)
  1. RECLAST [Suspect]
     Indication: OSTEOPOROSIS
     Dosage: 5 MG, INFUSION
     Dates: start: 20101111
  2. CALCIUM CARBONATE [Concomitant]
  3. VITAMIN D [Concomitant]
  4. DARVOCET-N (DEXTROPROPOXYPHENE NAPSILATE, PARACETAMOL) [Concomitant]
  5. CELEBREX [Concomitant]

REACTIONS (7)
  - GLOMERULAR FILTRATION RATE DECREASED [None]
  - PAIN [None]
  - MYALGIA [None]
  - DYSPNOEA [None]
  - BONE PAIN [None]
  - MUSCULOSKELETAL PAIN [None]
  - BLOOD CREATININE INCREASED [None]
